FAERS Safety Report 24296361 (Version 1)
Quarter: 2024Q3

REPORT INFORMATION
  Report Type: Report from Study
  Country: US (occurrence: US)
  Receive Date: 20240909
  Receipt Date: 20240909
  Transmission Date: 20241016
  Serious: Yes (Other)
  Sender: MITSUBISHI TANABE PHARMA
  Company Number: US-MTPC-MTDA2024-0018420

PATIENT
  Sex: Female

DRUGS (2)
  1. RADICAVA ORS [Suspect]
     Active Substance: EDARAVONE
     Indication: Amyotrophic lateral sclerosis
     Dosage: 5 MILLILITER, QD FOR 14 DAYS ON, THEN 14 DAYS OFF
     Route: 048
     Dates: start: 202408
  2. RADICAVA ORS [Suspect]
     Active Substance: EDARAVONE
     Indication: Amyotrophic lateral sclerosis
     Dosage: 5 MILLILITER, QD FOR 14 DAYS ON, THEN 14 DAYS OFF
     Route: 048
     Dates: start: 202408

REACTIONS (2)
  - Dysarthria [Not Recovered/Not Resolved]
  - Tongue movement disturbance [Not Recovered/Not Resolved]
